FAERS Safety Report 21515050 (Version 1)
Quarter: 2022Q4

REPORT INFORMATION
  Report Type: Spontaneous
  Country: PL (occurrence: PL)
  Receive Date: 20221027
  Receipt Date: 20221027
  Transmission Date: 20230113
  Serious: Yes (Other)
  Sender: FDA-Public Use
  Company Number: PL-NOVARTISPH-NVSC2022PL239737

PATIENT
  Age: 42 Month
  Sex: Male

DRUGS (14)
  1. OMEPRAZOLE [Interacting]
     Active Substance: OMEPRAZOLE
     Indication: Antiplatelet therapy
     Dosage: 40 MG, QD
     Route: 065
  2. OMEPRAZOLE [Interacting]
     Active Substance: OMEPRAZOLE
     Dosage: DOUBLE DOSE (80 MG,1 IN 1 D)
     Route: 065
  3. CLOPIDOGREL [Interacting]
     Active Substance: CLOPIDOGREL BISULFATE
     Indication: Acute coronary syndrome
     Dosage: 75 MG, QD
     Route: 065
  4. MEMANTINE [Interacting]
     Active Substance: MEMANTINE
     Indication: Depression
     Dosage: 10 MG, QD (1 IN 1 D)
     Route: 065
  5. ACETAMINOPHEN [Suspect]
     Active Substance: ACETAMINOPHEN
     Indication: Abdominal pain upper
     Dosage: 4 G, QD (1 G, QID)
     Route: 065
  6. BUPROPION HYDROCHLORIDE [Interacting]
     Active Substance: BUPROPION HYDROCHLORIDE
     Indication: Depression
     Dosage: 300 MG, QD
     Route: 065
  7. ITRACONAZOLE [Interacting]
     Active Substance: ITRACONAZOLE
     Indication: Onychomycosis
     Dosage: 200 MG,1 IN 12 HR IN 7 DAY PULSE
     Route: 065
  8. ACETAMINOPHEN\TRAMADOL [Interacting]
     Active Substance: ACETAMINOPHEN\TRAMADOL
     Indication: Pain
     Dosage: 75/650 MG (3 X DAY) (1 DOSAGE FORMS,1 IN 8 HR)
     Route: 065
  9. DROTAVERINE [Interacting]
     Active Substance: DROTAVERINE
     Indication: Abdominal pain upper
     Dosage: 240 MG, QD (80 MG, TID)
     Route: 065
  10. ZOFENOPRIL [Concomitant]
     Active Substance: ZOFENOPRIL
     Indication: Acute coronary syndrome
     Dosage: 7.5 MG, QD
     Route: 065
  11. VORTIOXETINE [Concomitant]
     Active Substance: VORTIOXETINE
     Indication: Antidepressant therapy
     Dosage: UNK
     Route: 065
  12. NEBIVOLOL [Concomitant]
     Active Substance: NEBIVOLOL
     Indication: Acute coronary syndrome
     Dosage: 5 MG, QD
     Route: 065
  13. SERTRALINE [Concomitant]
     Active Substance: SERTRALINE HYDROCHLORIDE
     Indication: Antidepressant therapy
     Dosage: UNK
     Route: 065
  14. ASPIRIN [Concomitant]
     Active Substance: ASPIRIN
     Indication: Acute coronary syndrome
     Dosage: 150 MG, QD
     Route: 065

REACTIONS (6)
  - Myalgia [Recovered/Resolved]
  - Abdominal pain upper [Recovered/Resolved]
  - Arthralgia [Recovered/Resolved]
  - Nausea [Recovered/Resolved]
  - Drug interaction [Unknown]
  - Treatment failure [Unknown]
